FAERS Safety Report 10006545 (Version 1)
Quarter: 2014Q1

REPORT INFORMATION
  Report Type: Spontaneous
  Country: US (occurrence: US)
  Receive Date: 20140313
  Receipt Date: 20140313
  Transmission Date: 20141002
  Serious: No
  Sender: FDA-Public Use
  Company Number: US-BAYER-2014-036203

PATIENT
  Sex: Female

DRUGS (1)
  1. MIRENA [Suspect]
     Dosage: UNK
     Dates: start: 2013

REACTIONS (4)
  - Menorrhagia [None]
  - Amenorrhoea [None]
  - Peripheral coldness [None]
  - Hypoaesthesia [None]
